FAERS Safety Report 19960319 (Version 1)
Quarter: 2021Q4

REPORT INFORMATION
  Report Type: Spontaneous
  Country: US (occurrence: US)
  Receive Date: 20211015
  Receipt Date: 20211015
  Transmission Date: 20220304
  Serious: Yes (Hospitalization)
  Sender: FDA-Public Use
  Company Number: US-FRESENIUS MEDICAL CARE RENAL THERAPIES GROUP-FMC-2109-001414

PATIENT
  Age: 71 Year
  Sex: Male
  Weight: 90.5 kg

DRUGS (1)
  1. DELFLEX WITH DEXTROSE 2.5% LOW MAGNESIUM LOW CALCIUM [Suspect]
     Active Substance: CALCIUM CHLORIDE\DEXTROSE\MAGNESIUM CHLORIDE\SODIUM CHLORIDE\SODIUM LACTATE
     Indication: End stage renal disease
     Dosage: 3 FILLS OF 2,800ML, WITH 1 PAUSE OF 2,000ML, DWELL TIME OF 1 HOUR AND 57 MINUTES, LAST FILL OF 2,000
     Route: 033

REACTIONS (1)
  - Ileus [Unknown]
